FAERS Safety Report 8859562 (Version 2)
Quarter: 2012Q4

REPORT INFORMATION
  Report Type: 
  Country: US (occurrence: US)
  Receive Date: 20121025
  Receipt Date: 20121030
  Transmission Date: 20130627
  Serious: Yes (Hospitalization)
  Sender: FDA-Public Use
  Company Number: US-SANOFI-AVENTIS-2012SA077116

PATIENT
  Age: 60 Year
  Sex: Male
  Weight: 92 kg

DRUGS (14)
  1. INSULIN GLARGINE [Suspect]
     Indication: DIABETES MELLITUS
     Dosage: 80 units at night and 60 units in morning Dose:140 unit(s)
     Route: 058
  2. CHOLECALCIFEROL [Concomitant]
     Indication: VITAMIN SUPPLEMENTATION
     Dosage: Dose:1000 unit(s)
  3. CLOBETASOL  PROPIONATE [Concomitant]
     Indication: SKIN DISORDER
     Dosage: 0.05% ointment
     Route: 061
  4. DICLOFENAC SODIUM [Concomitant]
     Indication: PAIN
     Dosage: enteric coated
  5. DOCUSATE SODIUM [Concomitant]
     Indication: CONSTIPATION PROPHYLAXIS
  6. DOXAZOSIN MESILATE [Concomitant]
     Indication: BENIGN PROSTATIC HYPERTROPHY
  7. HYDROCHLOROTHIAZIDE [Concomitant]
     Indication: HYPERTENSION
  8. LISINOPRIL [Concomitant]
     Indication: HYPERTENSION
  9. MORPHINE SULFATE [Concomitant]
     Indication: PAIN
  10. ROSUVASTATIN [Concomitant]
     Indication: DYSLIPIDEMIA
  11. SENNA ALEXANDRINA DRY EXTRACT/SENNA ALEXANDRINA FRUIT EXTRACT [Concomitant]
     Indication: CONSTIPATION PROPHYLAXIS
  12. VALPROIC ACID [Concomitant]
     Indication: PSYCHIATRIC DISORDER NOS
  13. VENLAFAXINE HYDROCHLORIDE [Concomitant]
     Indication: MAJOR DEPRESSIVE DISORDER NOS
     Dosage: sustained-action
  14. VENLAFAXINE HYDROCHLORIDE [Concomitant]
     Indication: POST-TRAUMATIC STRESS DISORDER
     Dosage: sustained-action

REACTIONS (10)
  - Subcutaneous abscess [Recovered/Resolved]
  - Asthenia [Recovered/Resolved]
  - Pyrexia [Recovered/Resolved]
  - Chills [Recovered/Resolved]
  - White blood cell count increased [Recovered/Resolved]
  - Pain of skin [Recovered/Resolved]
  - Wound secretion [Recovered/Resolved]
  - Skin warm [Recovered/Resolved]
  - Erythema [Recovered/Resolved]
  - Cellulitis [Recovered/Resolved]
